FAERS Safety Report 9978690 (Version 1)
Quarter: 2014Q1

REPORT INFORMATION
  Report Type: Report from Study
  Country: US (occurrence: US)
  Receive Date: 20140306
  Receipt Date: 20140306
  Transmission Date: 20141002
  Serious: No
  Sender: FDA-Public Use
  Company Number: US-ABBVIE-13P-163-1170073-00

PATIENT
  Age: 19 Year
  Sex: Female

DRUGS (7)
  1. HUMIRA [Suspect]
     Dates: start: 20131015
  2. PENTASA [Concomitant]
     Indication: CROHN^S DISEASE
     Dosage: 4 TABLETS EVERY DAY
  3. DEXILANT [Concomitant]
     Indication: GASTROOESOPHAGEAL REFLUX DISEASE
     Dosage: 60 MG EVERY DAY
  4. NOSE SPRAY [Concomitant]
     Indication: UPPER RESPIRATORY TRACT INFECTION
  5. MECOBAL [Concomitant]
     Indication: PRODUCT USED FOR UNKNOWN INDICATION
  6. AMITRIPTYLINE [Concomitant]
     Indication: FIBROMYALGIA
     Dosage: EVERY NIGHT AT BEDTIME
  7. NORGEFTIMATE [Concomitant]
     Indication: ORAL CONTRACEPTION

REACTIONS (6)
  - Asthenia [Not Recovered/Not Resolved]
  - Dizziness [Not Recovered/Not Resolved]
  - Cough [Not Recovered/Not Resolved]
  - Dyspnoea [Not Recovered/Not Resolved]
  - Paraesthesia [Not Recovered/Not Resolved]
  - Paraesthesia [Not Recovered/Not Resolved]
